FAERS Safety Report 25877025 (Version 1)
Quarter: 2025Q4

REPORT INFORMATION
  Report Type: Spontaneous
  Country: EU (occurrence: EU)
  Receive Date: 20251003
  Receipt Date: 20251003
  Transmission Date: 20260117
  Serious: Yes (Death, Hospitalization, Other)
  Sender: pharmaAND
  Company Number: None

PATIENT
  Age: 69 Year
  Sex: Female
  Weight: 46 kg

DRUGS (2)
  1. RUBRACA [Suspect]
     Active Substance: RUCAPARIB CAMSYLATE
     Indication: Ovarian cancer
     Route: 048
     Dates: start: 20250508, end: 20250709
  2. RUBRACA [Suspect]
     Active Substance: RUCAPARIB CAMSYLATE
     Indication: Ovarian cancer
     Route: 048
     Dates: start: 20250801, end: 20250827

REACTIONS (8)
  - Leukopenia [Fatal]
  - Neutropenia [Fatal]
  - Anaemia [Fatal]
  - Pneumonia [Fatal]
  - Asthenia [Fatal]
  - Stomatitis [Fatal]
  - Thrombocytopenia [Unknown]
  - Pyrexia [Recovered/Resolved]

NARRATIVE: CASE EVENT DATE: 20250828
